FAERS Safety Report 6023437-6 (Version None)
Quarter: 2008Q4

REPORT INFORMATION
  Report Type: 
  Country: None (occurrence: None)
  Receive Date: 20081222
  Receipt Date: 20081118
  Transmission Date: 20090506
  Serious: No
  Sender: FDA-Public Use
  Company Number: ALL1-2008-03365

PATIENT
  Age: 4 Year
  Sex: Male
  Weight: 17.7 kg

DRUGS (4)
  1. VYVANSE [Suspect]
     Indication: ATTENTION DEFICIT/HYPERACTIVITY DISORDER
     Dosage: (ONE-THIRD OF A 30MG CAPSULE DISSOLVED IN WATER), 1X/DAY:QD, ORAL
     Route: 048
     Dates: start: 20081112
  2. HUMALOG /00030501/ (INSULIN) [Concomitant]
  3. INSULIN (INSULIN) [Concomitant]
  4. IVEGAM /01995701/ (IMMUNOGLOBULIN) [Concomitant]

REACTIONS (4)
  - ANGER [None]
  - IRRITABILITY [None]
  - OFF LABEL USE [None]
  - WRONG TECHNIQUE IN DRUG USAGE PROCESS [None]
